FAERS Safety Report 22045226 (Version 1)
Quarter: 2023Q1

REPORT INFORMATION
  Report Type: Spontaneous
  Country: US (occurrence: None)
  Receive Date: 20230227
  Receipt Date: 20230227
  Transmission Date: 20230417
  Serious: Yes (Other)
  Sender: FDA-Public Use
  Company Number: None

PATIENT
  Age: 85 Year
  Sex: Male

DRUGS (8)
  1. PRALUENT [Suspect]
     Active Substance: ALIROCUMAB
     Indication: Hypercholesterolaemia
     Dates: start: 20221129, end: 20230206
  2. FENOFIBRATE [Concomitant]
  3. metoprolol ER succinate [Concomitant]
  4. ROSUVASTATIN [Concomitant]
  5. trospium cl [Concomitant]
  6. LEVOTHYROXINE [Concomitant]
     Active Substance: LEVOTHYROXINE
  7. VITAMINS [Concomitant]
     Active Substance: VITAMINS
  8. aspirin [Concomitant]

REACTIONS (6)
  - Pruritus [None]
  - Rash macular [None]
  - Injection site pruritus [None]
  - Insomnia [None]
  - Formication [None]
  - Therapy interrupted [None]

NARRATIVE: CASE EVENT DATE: 20230206
